FAERS Safety Report 13735262 (Version 1)
Quarter: 2017Q3

REPORT INFORMATION
  Report Type: Spontaneous
  Country: US (occurrence: US)
  Receive Date: 20170707
  Receipt Date: 20170707
  Transmission Date: 20171127
  Serious: Yes (Other)
  Sender: FDA-Public Use
  Company Number: None

PATIENT
  Age: 56 Year
  Sex: Male
  Weight: 74.25 kg

DRUGS (4)
  1. MORPHINE [Concomitant]
     Active Substance: MORPHINE
  2. METHACARBOHOL [Concomitant]
  3. OXYCODONE/ACETAMINOPHEN 10-325 M [Suspect]
     Active Substance: ACETAMINOPHEN\OXYCODONE HYDROCHLORIDE
     Indication: BACK PAIN
     Dosage: ?          OTHER STRENGTH:MG;QUANTITY:1 TABLET(S);?
     Route: 048
     Dates: start: 20170514, end: 20170707
  4. GABAPINTIN [Concomitant]

REACTIONS (4)
  - Anxiety [None]
  - Headache [None]
  - Pollakiuria [None]
  - Drug ineffective [None]

NARRATIVE: CASE EVENT DATE: 20170530
